FAERS Safety Report 9438033 (Version 1)
Quarter: 2013Q3

REPORT INFORMATION
  Report Type: Spontaneous
  Country: US (occurrence: None)
  Receive Date: 20130802
  Receipt Date: 20130802
  Transmission Date: 20140515
  Serious: No
  Sender: FDA-Public Use
  Company Number: None

PATIENT
  Age: 68 Year
  Sex: Male

DRUGS (1)
  1. TARGRETIN [Suspect]
     Route: 048
     Dates: start: 20121120, end: 201301

REACTIONS (1)
  - Pneumonia [None]
